FAERS Safety Report 12352482 (Version 1)
Quarter: 2016Q2

REPORT INFORMATION
  Report Type: Spontaneous
  Country: US (occurrence: US)
  Receive Date: 20160510
  Receipt Date: 20160510
  Transmission Date: 20160815
  Serious: Yes (Hospitalization, Other)
  Sender: FDA-Public Use
  Company Number: US-APOTEX-2016AP008333

PATIENT
  Age: 24 Year
  Sex: Male

DRUGS (4)
  1. LOPERAMIDE [Suspect]
     Active Substance: LOPERAMIDE
     Indication: INTENTIONAL OVERDOSE
     Dosage: UP TO 400 MG DAILY
     Route: 065
  2. SODIUM BICARBONATE. [Suspect]
     Active Substance: SODIUM BICARBONATE
     Indication: VENTRICULAR TACHYCARDIA
     Dosage: SEVERAL BOLUSES
     Route: 065
  3. LOPERAMIDE [Suspect]
     Active Substance: LOPERAMIDE
     Indication: DRUG ABUSE
  4. CIMETIDINE TABLETS USP [Suspect]
     Active Substance: CIMETIDINE
     Indication: DRUG ABUSE
     Dosage: UNK UNK, UNKNOWN
     Route: 065

REACTIONS (8)
  - Intentional overdose [Recovered/Resolved]
  - Electrocardiogram QRS complex shortened [Recovered/Resolved]
  - Ventricular arrhythmia [Recovered/Resolved]
  - Electrocardiogram QT prolonged [Recovered/Resolved]
  - Tachycardia [Recovered/Resolved]
  - Electrocardiogram QRS complex prolonged [Recovered/Resolved]
  - Ventricular tachycardia [Recovered/Resolved]
  - Drug abuse [Recovered/Resolved]
